FAERS Safety Report 14679087 (Version 1)
Quarter: 2018Q1

REPORT INFORMATION
  Report Type: Report from Study
  Country: BR (occurrence: BR)
  Receive Date: 20180326
  Receipt Date: 20180326
  Transmission Date: 20180509
  Serious: Yes (Other)
  Sender: FDA-Public Use
  Company Number: PHHY2018BR050409

PATIENT
  Sex: Female
  Weight: 72 kg

DRUGS (2)
  1. ACLASTA [Suspect]
     Active Substance: ZOLEDRONIC ACID
     Indication: OSTEOPOROSIS
     Dosage: 1 DF (5MG/100ML), Q12MO
     Route: 042
     Dates: start: 201509
  2. ACLASTA [Suspect]
     Active Substance: ZOLEDRONIC ACID
     Dosage: 1 DF (5MG/100ML), Q12MO
     Route: 042
     Dates: start: 201710, end: 201710

REACTIONS (14)
  - Synovial cyst [Unknown]
  - Dehydration [Unknown]
  - Fall [Unknown]
  - Immunodeficiency [Unknown]
  - Tremor [Unknown]
  - Arthralgia [Unknown]
  - Condition aggravated [Recovering/Resolving]
  - Therapeutic response shortened [Unknown]
  - Osteoporosis [Recovering/Resolving]
  - Medical device site pain [Unknown]
  - Synovial rupture [Unknown]
  - Asthenia [Unknown]
  - Chills [Unknown]
  - Nasopharyngitis [Unknown]
